FAERS Safety Report 8132084-1 (Version None)
Quarter: 2012Q1

REPORT INFORMATION
  Report Type: 
  Country: None (occurrence: None)
  Receive Date: 20120213
  Receipt Date: 20120207
  Transmission Date: 20120608
  Serious: Yes (Death, Hospitalization, Other)
  Sender: FDA-Public Use
  Company Number: US-PFIZER INC-2012003340

PATIENT
  Sex: Male

DRUGS (4)
  1. TAMSULOSIN HYDROCHLORIDE [Concomitant]
     Dosage: UNK
     Dates: start: 20110919
  2. SUTENT [Suspect]
     Indication: SARCOMA
     Dosage: 50 MG, 1X/DAY, 4/6 WKS
     Route: 048
     Dates: start: 20111222, end: 20111225
  3. OMEPRAZOLE [Concomitant]
     Dosage: UNK
  4. XANAX [Concomitant]
     Dosage: UNK
     Dates: start: 20110328

REACTIONS (3)
  - CHEST PAIN [None]
  - MYOCARDIAL INFARCTION [None]
  - MALAISE [None]
